FAERS Safety Report 10032989 (Version 1)
Quarter: 2014Q1

REPORT INFORMATION
  Report Type: Spontaneous
  Country: US (occurrence: US)
  Receive Date: 20140324
  Receipt Date: 20140324
  Transmission Date: 20141002
  Serious: No
  Sender: FDA-Public Use
  Company Number: US-PFIZER INC-2014081727

PATIENT
  Age: 69 Year
  Sex: Female

DRUGS (3)
  1. SUTENT [Suspect]
     Indication: RENAL CANCER
     Dosage: UNK
     Dates: start: 20140228
  2. METOPROLOL TARTRATE [Concomitant]
     Dosage: UNK
  3. MULTIVITAMINS [Concomitant]

REACTIONS (1)
  - Dizziness [Unknown]
